FAERS Safety Report 8128688-2 (Version None)
Quarter: 2012Q1

REPORT INFORMATION
  Report Type: 
  Country: None (occurrence: None)
  Receive Date: 20120210
  Receipt Date: 20110112
  Transmission Date: 20120608
  Serious: Yes (Hospitalization, Other)
  Sender: FDA-Public Use
  Company Number: US-BRISTOL-MYERS SQUIBB COMPANY-15456759

PATIENT
  Age: 55 Year
  Sex: Male

DRUGS (3)
  1. PREDNISONE TAB [Concomitant]
  2. ORENCIA [Suspect]
     Indication: RHEUMATOID ARTHRITIS
     Dosage: LAST INF ON 6OCT,20OCT,3NOV2010,LAST INF: 21DEC2010
     Route: 042
     Dates: start: 20101006
  3. METHOTREXATE [Concomitant]

REACTIONS (2)
  - RESPIRATORY TRACT INFECTION [None]
  - CELLULITIS [None]
